FAERS Safety Report 6302371-8 (Version None)
Quarter: 2009Q3

REPORT INFORMATION
  Report Type: 
  Country: None (occurrence: None)
  Receive Date: 20090810
  Receipt Date: 20090728
  Transmission Date: 20100115
  Serious: Yes (Death, Hospitalization, Other)
  Sender: FDA-Public Use
  Company Number: PHHY2009US31565

PATIENT
  Age: 71 Year
  Sex: Male

DRUGS (10)
  1. PAMIDRONATE DISODIUM [Suspect]
     Indication: HYPERCALCAEMIA OF MALIGNANCY
     Dosage: 90 MG, UNK
     Route: 042
  2. PAMIDRONATE DISODIUM [Suspect]
     Dosage: 60 MG, UNK
     Route: 042
  3. MIACALCIN [Suspect]
     Dosage: 400 U, Q12H
  4. ZOLEDRONIC ACID [Suspect]
     Indication: HYPERCALCAEMIA OF MALIGNANCY
     Dosage: 4 MG, UNK
     Route: 042
  5. ASPIRIN [Concomitant]
  6. METOPROLOL TARTRATE [Concomitant]
  7. SIMVASTATIN [Concomitant]
  8. SODIUM CHLORIDE [Concomitant]
  9. GEMCITABINE [Concomitant]
     Dosage: UNK
  10. CHEMOTHERAPEUTICS NOS [Concomitant]

REACTIONS (6)
  - ASTHENIA [None]
  - DEATH [None]
  - DYSPNOEA [None]
  - HYPERCALCAEMIA OF MALIGNANCY [None]
  - METASTASES TO LIVER [None]
  - VOMITING [None]
